FAERS Safety Report 6805607-X (Version None)
Quarter: 2010Q2

REPORT INFORMATION
  Report Type: 
  Country: None (occurrence: None)
  Receive Date: 20100628
  Receipt Date: 20080102
  Transmission Date: 20101027
  Serious: No
  Sender: FDA-Public Use
  Company Number: US-PFIZER INC-2008001177

PATIENT
  Sex: Male
  Weight: 102.06 kg

DRUGS (3)
  1. CADUET [Suspect]
     Indication: HYPERTENSION
     Dosage: 10/10 MG: 10/10 MG
     Dates: start: 20070901, end: 20071230
  2. CADUET [Suspect]
     Indication: BLOOD CHOLESTEROL INCREASED
  3. ATENOLOL [Concomitant]
     Dates: start: 19990101

REACTIONS (4)
  - ABDOMINAL PAIN LOWER [None]
  - GAIT DISTURBANCE [None]
  - MYALGIA [None]
  - PELVIC PAIN [None]
